FAERS Safety Report 4874845-8 (Version None)
Quarter: 2006Q1

REPORT INFORMATION
  Report Type: 
  Country: None (occurrence: None)
  Receive Date: 20060104
  Receipt Date: 20051223
  Transmission Date: 20060701
  Serious: Yes (Disabling)
  Sender: FDA-Public Use
  Company Number: 2005-136214-NL

PATIENT
  Age: 80 Year
  Sex: Female

DRUGS (8)
  1. MIRTAZAPINE [Suspect]
     Dosage: DF ORAL
     Route: 048
  2. ATORVASTATIN CALCIUM [Suspect]
     Indication: HYPERLIPIDAEMIA
     Dosage: 20 MG ORAL
     Route: 048
     Dates: start: 20051001
  3. CIPROFLOXACIN HYDROCHLORIDE [Suspect]
     Indication: CULTURE URINE POSITIVE
     Dosage: DF
     Dates: start: 20051001, end: 20051001
  4. COVERSUM COMBI [Concomitant]
  5. SOTALOL HCL [Concomitant]
  6. DIGOXIN [Concomitant]
  7. FUROSEMIDE SODIUM [Concomitant]
  8. PHENPROCOUMON [Concomitant]

REACTIONS (2)
  - DRUG INTERACTION [None]
  - RHABDOMYOLYSIS [None]
